FAERS Safety Report 24122904 (Version 1)
Quarter: 2024Q3

REPORT INFORMATION
  Report Type: Spontaneous
  Country: FR (occurrence: FR)
  Receive Date: 20240723
  Receipt Date: 20240723
  Transmission Date: 20241016
  Serious: No
  Sender: ALKEM
  Company Number: FR-ALKEM LABORATORIES LIMITED-FR-ALKEM-2024-06517

PATIENT
  Sex: Female

DRUGS (1)
  1. DRONABINOL [Suspect]
     Active Substance: DRONABINOL
     Indication: Neuralgia
     Dosage: 2.5 MILLIGRAM, QID (10 MG IN 4 INTAKES) CAPSULE MOLLE, SOFT CAPSULE
     Route: 065
     Dates: start: 20231102, end: 20240318

REACTIONS (3)
  - Drug intolerance [Unknown]
  - Off label use [Unknown]
  - Product prescribing issue [Unknown]
